FAERS Safety Report 4285811-8 (Version None)
Quarter: 2004Q1

REPORT INFORMATION
  Report Type: 
  Country: None (occurrence: None)
  Receive Date: 20040203
  Receipt Date: 20040122
  Transmission Date: 20041129
  Serious: Yes (Hospitalization)
  Sender: FDA-Public Use
  Company Number: US064829

PATIENT
  Age: 75 Year
  Sex: Male

DRUGS (4)
  1. ENBREL [Suspect]
     Indication: RHEUMATOID ARTHRITIS
     Dosage: 2 IN 1 WEEKS, SC
     Route: 058
     Dates: start: 20030801, end: 20040114
  2. SIMVASTATIN [Concomitant]
  3. METAXALONE [Concomitant]
  4. FOSINOPRIL SODIUM [Concomitant]

REACTIONS (2)
  - AORTIC VALVE REPLACEMENT [None]
  - GRAND MAL CONVULSION [None]
